FAERS Safety Report 12146322 (Version 1)
Quarter: 2016Q1

REPORT INFORMATION
  Report Type: Spontaneous
  Country: CA (occurrence: CA)
  Receive Date: 20160304
  Receipt Date: 20160304
  Transmission Date: 20160526
  Serious: Yes (Hospitalization, Other)
  Sender: FDA-Public Use
  Company Number: CA-PFIZER INC-2016130413

PATIENT
  Age: 6 Year
  Sex: Male

DRUGS (1)
  1. CHILDRENS ADVIL [Suspect]
     Active Substance: IBUPROFEN
     Indication: PYREXIA
     Dosage: UNK
     Dates: start: 20160204

REACTIONS (8)
  - Product quality issue [Unknown]
  - Drug administration error [Unknown]
  - Poor quality drug administered [Unknown]
  - Condition aggravated [Unknown]
  - Pharyngitis [Unknown]
  - Febrile convulsion [Unknown]
  - Pyrexia [Unknown]
  - Drug ineffective [Unknown]

NARRATIVE: CASE EVENT DATE: 20160204
